FAERS Safety Report 24403793 (Version 2)
Quarter: 2025Q4

REPORT INFORMATION
  Report Type: Spontaneous
  Country: US (occurrence: US)
  Receive Date: 20241007
  Receipt Date: 20251006
  Transmission Date: 20260118
  Serious: No
  Sender: RANBAXY
  Company Number: US-SUN PHARMACEUTICAL INDUSTRIES LTD-2024R1-453224

PATIENT
  Age: 67 Year
  Sex: Female
  Weight: 90.703 kg

DRUGS (3)
  1. CEQUA [Suspect]
     Active Substance: CYCLOSPORINE
     Indication: Lacrimation increased
     Dosage: UNK (0.09% TWICE DAILY)
     Route: 047
     Dates: start: 20240702
  2. CEQUA [Suspect]
     Active Substance: CYCLOSPORINE
     Indication: Eye pruritus
  3. CEQUA [Suspect]
     Active Substance: CYCLOSPORINE
     Indication: Eye swelling

REACTIONS (2)
  - Product use issue [Unknown]
  - Incorrect dosage administered [Unknown]
